FAERS Safety Report 19382173 (Version 10)
Quarter: 2024Q1

REPORT INFORMATION
  Report Type: Spontaneous
  Country: US (occurrence: US)
  Receive Date: 20210607
  Receipt Date: 20240102
  Transmission Date: 20240409
  Serious: Yes (Other)
  Sender: FDA-Public Use
  Company Number: US-PFIZER INC-2021026458

PATIENT
  Age: 73 Year
  Sex: Female

DRUGS (1)
  1. IBRANCE [Suspect]
     Active Substance: PALBOCICLIB
     Indication: Breast cancer metastatic
     Dosage: 125 MG, CYCLIC (ONCE DAILY ON DAYS 1-21, THEN 7 DAYS OFF, REPEAT EVERY 28 DAYS)
     Route: 048

REACTIONS (22)
  - Arthropathy [Unknown]
  - Diabetes mellitus [Unknown]
  - Cellulitis [Unknown]
  - Neoplasm progression [Unknown]
  - Brain fog [Unknown]
  - Memory impairment [Unknown]
  - Depressed mood [Unknown]
  - Crying [Unknown]
  - Anxiety [Unknown]
  - Back pain [Unknown]
  - Arthralgia [Unknown]
  - Fibromyalgia [Unknown]
  - Intervertebral disc protrusion [Unknown]
  - Fatigue [Unknown]
  - Pain [Unknown]
  - Illness [Unknown]
  - Arthropod bite [Recovering/Resolving]
  - Pruritus [Recovering/Resolving]
  - Cough [Unknown]
  - Nasopharyngitis [Unknown]
  - Middle insomnia [Unknown]
  - Initial insomnia [Unknown]
